FAERS Safety Report 12456137 (Version 5)
Quarter: 2019Q4

REPORT INFORMATION
  Report Type: Spontaneous
  Country: US (occurrence: US)
  Receive Date: 20160610
  Receipt Date: 20191226
  Transmission Date: 20200122
  Serious: Yes (Death, Hospitalization)
  Sender: FDA-Public Use
  Company Number: US-JNJFOC-20160603707

PATIENT
  Age: 51 Year
  Sex: Male
  Weight: 155.4 kg

DRUGS (2)
  1. XARELTO [Suspect]
     Active Substance: RIVAROXABAN
     Indication: DEEP VEIN THROMBOSIS
     Route: 048
     Dates: start: 20150501, end: 20150614
  2. XARELTO [Suspect]
     Active Substance: RIVAROXABAN
     Dosage: FROM 2015 TO /JUL/2015
     Route: 048

REACTIONS (8)
  - Septic shock [Fatal]
  - Coagulopathy [Fatal]
  - Arterial haemorrhage [Fatal]
  - Gingival bleeding [Recovered/Resolved]
  - Dizziness [Recovered/Resolved]
  - Shock haemorrhagic [Fatal]
  - Internal haemorrhage [Unknown]
  - Epistaxis [Recovered/Resolved]

NARRATIVE: CASE EVENT DATE: 20150701
